FAERS Safety Report 17395274 (Version 1)
Quarter: 2020Q1

REPORT INFORMATION
  Report Type: Spontaneous
  Country: CA (occurrence: CA)
  Receive Date: 20200210
  Receipt Date: 20200210
  Transmission Date: 20200409
  Serious: Yes (Hospitalization, Other)
  Sender: FDA-Public Use
  Company Number: CA-HORIZON-RAV-0011-2020

PATIENT
  Age: 15 Year
  Sex: Female

DRUGS (8)
  1. CITRULLINE [Concomitant]
     Active Substance: CITRULLINE
  2. RAVICTI [Suspect]
     Active Substance: GLYCEROL PHENYLBUTYRATE
     Indication: ORNITHINE TRANSCARBAMOYLASE DEFICIENCY
     Dosage: 5.0ML TID, 5.3ML TID SINCE 20-DEC-2019
     Dates: start: 20170210
  3. VITAMIN D [Concomitant]
     Active Substance: VITAMIN D NOS
  4. AMINO ACIDS [Concomitant]
     Active Substance: AMINO ACIDS, SOURCE UNSPECIFIED
  5. CALCIUM [Concomitant]
     Active Substance: CALCIUM
  6. MULTIVITAMINS [Concomitant]
     Active Substance: VITAMINS
  7. FREYA BIRTH CONTROL [Concomitant]
  8. SODIUM BENZOATE [Concomitant]
     Active Substance: SODIUM BENZOATE

REACTIONS (3)
  - Condition aggravated [Unknown]
  - Ornithine transcarbamoylase deficiency [Unknown]
  - Liver transplant [Recovering/Resolving]

NARRATIVE: CASE EVENT DATE: 20200113
